FAERS Safety Report 5054305-4 (Version None)
Quarter: 2006Q3

REPORT INFORMATION
  Report Type: 
  Country: None (occurrence: None)
  Receive Date: 20060718
  Receipt Date: 20050726
  Transmission Date: 20061208
  Serious: Yes (Hospitalization)
  Sender: FDA-Public Use
  Company Number: US-KINGPHARMUSA00001-K200501008

PATIENT
  Age: 58 Year
  Sex: Male

DRUGS (15)
  1. ALTACE [Suspect]
     Indication: PROPHYLAXIS
     Dosage: 10 MG, QD
     Route: 048
     Dates: start: 20041101, end: 20041123
  2. ALTACE [Suspect]
     Dosage: 5 MG, QD
     Route: 048
     Dates: start: 20041124, end: 20060709
  3. ALTACE [Suspect]
     Dosage: 2.5 MG, QD
     Route: 048
     Dates: start: 20060710
  4. AVANDAMET [Suspect]
     Indication: DIABETES MELLITUS NON-INSULIN-DEPENDENT
     Dosage: 500/2 MG, BID
     Route: 048
     Dates: start: 20041118, end: 20041123
  5. AVANDAMET [Suspect]
     Dosage: 1/2 500/2MG , BID
     Route: 048
     Dates: start: 20041124, end: 20050118
  6. AVANDAMET [Suspect]
     Dosage: 1/2 500/2MG, BID
     Route: 048
     Dates: start: 20050101, end: 20050610
  7. AVANDIA [Suspect]
     Indication: DIABETES MELLITUS NON-INSULIN-DEPENDENT
     Dosage: 4 MG, QD
     Route: 048
     Dates: start: 20050610
  8. METFORMIN HCL [Suspect]
     Indication: DIABETES MELLITUS NON-INSULIN-DEPENDENT
     Dosage: 250 MG, BID
     Dates: start: 20050610, end: 20050621
  9. METFORMIN HCL [Suspect]
     Dosage: 500 MG, BID
     Route: 048
     Dates: start: 20050622
  10. METFORMIN HCL [Suspect]
     Dosage: 1000 MG, QD
     Route: 048
     Dates: end: 20060707
  11. METFORMIN HCL [Suspect]
     Dosage: 750 MG, QD
     Route: 048
     Dates: start: 20060708
  12. ASPIRIN [Concomitant]
  13. ATORVASTATIN CALCIUM [Concomitant]
  14. PLAVIX [Concomitant]
  15. CINNAMOMUM VERUM [Concomitant]
     Indication: DIABETES MELLITUS
     Route: 048

REACTIONS (6)
  - BLOOD PRESSURE SYSTOLIC INCREASED [None]
  - DIZZINESS [None]
  - HYPERGLYCAEMIA [None]
  - HYPOTENSION [None]
  - LOSS OF CONSCIOUSNESS [None]
  - MYOCARDIAL INFARCTION [None]
